FAERS Safety Report 15202821 (Version 1)
Quarter: 2018Q3

REPORT INFORMATION
  Report Type: Spontaneous
  Country: PT (occurrence: PT)
  Receive Date: 20180726
  Receipt Date: 20180726
  Transmission Date: 20181010
  Serious: Yes (Hospitalization, Other)
  Sender: FDA-Public Use
  Company Number: PT-AUROBINDO-AUR-APL-2018-036529

PATIENT
  Age: 33 Year
  Sex: Female

DRUGS (3)
  1. COLISTINA [Suspect]
     Active Substance: COLISTIMETHATE SODIUM
     Indication: PNEUMONIA KLEBSIELLA
     Dosage: UNK
     Route: 065
  2. MEROPENEM. [Suspect]
     Active Substance: MEROPENEM
     Indication: PRODUCT USED FOR UNKNOWN INDICATION
     Dosage: UNK
     Route: 065
  3. TIGECYCLINE. [Suspect]
     Active Substance: TIGECYCLINE
     Indication: PNEUMONIA KLEBSIELLA
     Dosage: UNK
     Route: 065

REACTIONS (3)
  - Drug resistance [Unknown]
  - Drug ineffective [Unknown]
  - Pathogen resistance [Unknown]
